FAERS Safety Report 4577025-9 (Version None)
Quarter: 2005Q1

REPORT INFORMATION
  Report Type: 
  Country: None (occurrence: None)
  Receive Date: 20050208
  Receipt Date: 20050124
  Transmission Date: 20050727
  Serious: Yes (Death)
  Sender: FDA-Public Use
  Company Number: P2005000001

PATIENT
  Age: 82 Year
  Sex: Male
  Weight: 81.6 kg

DRUGS (5)
  1. PLENAXIS [Suspect]
     Indication: PROSTATE CANCER
     Dosage: SEE IMAGE
     Route: 030
     Dates: start: 20040616, end: 20040616
  2. PLENAXIS [Suspect]
     Indication: PROSTATE CANCER
     Dosage: SEE IMAGE
     Route: 030
     Dates: start: 20040630, end: 20040630
  3. LUPRON [Concomitant]
  4. ZOLADEX [Concomitant]
  5. CASODEX [Concomitant]

REACTIONS (1)
  - DEATH [None]
